FAERS Safety Report 7470118-8 (Version None)
Quarter: 2011Q2

REPORT INFORMATION
  Report Type: 
  Country: None (occurrence: None)
  Receive Date: 20110510
  Receipt Date: 20110505
  Transmission Date: 20111010
  Serious: Yes (Other)
  Sender: FDA-Public Use
  Company Number: A0905279A

PATIENT
  Age: 24 Year
  Sex: Female

DRUGS (5)
  1. ISENTRESS [Suspect]
     Indication: HIV INFECTION
     Dosage: 800MGD PER DAY
     Route: 048
  2. NORVIR [Suspect]
     Indication: HIV INFECTION
     Dosage: 100MGD PER DAY
     Route: 048
  3. VIREAD [Suspect]
     Indication: HIV INFECTION
     Dosage: 245MGD PER DAY
     Route: 048
     Dates: end: 20110114
  4. EPZICOM [Suspect]
     Indication: HIV INFECTION
     Dosage: 1TAB PER DAY
     Route: 048
  5. REYATAZ [Suspect]
     Indication: HIV INFECTION
     Dosage: 300MGD PER DAY
     Route: 048

REACTIONS (7)
  - SMALL FOR DATES BABY [None]
  - PLACENTAL INSUFFICIENCY [None]
  - DRUG EXPOSURE DURING PREGNANCY [None]
  - PREMATURE BABY [None]
  - PLACENTAL DISORDER [None]
  - PLACENTA PRAEVIA [None]
  - LIVE BIRTH [None]
